FAERS Safety Report 18527497 (Version 1)
Quarter: 2020Q4

REPORT INFORMATION
  Report Type: Report from Study
  Country: US (occurrence: US)
  Receive Date: 20201120
  Receipt Date: 20201120
  Transmission Date: 20210114
  Serious: Yes (Hospitalization)
  Sender: FDA-Public Use
  Company Number: US-PFIZER INC-2020455897

PATIENT
  Age: 6 Year
  Sex: Male
  Weight: 23.7 kg

DRUGS (3)
  1. INCB018424 [Suspect]
     Active Substance: RUXOLITINIB
     Indication: LEUKAEMIA
     Dosage: 25 MG, 2X/DAY, TABLET
     Route: 048
     Dates: start: 20170118, end: 20170228
  2. VINCRISTINE SULFATE. [Suspect]
     Active Substance: VINCRISTINE SULFATE
     Indication: LEUKAEMIA
     Dosage: 1.4 MG
     Route: 042
     Dates: start: 20170301, end: 20170308
  3. INCB018424 [Suspect]
     Active Substance: RUXOLITINIB
     Dosage: 25 MG, 2X/DAY, TABLET
     Route: 048
     Dates: start: 20170327

REACTIONS (1)
  - Pancytopenia [Recovered/Resolved]

NARRATIVE: CASE EVENT DATE: 20170309
